FAERS Safety Report 15541280 (Version 2)
Quarter: 2018Q4

REPORT INFORMATION
  Report Type: Spontaneous
  Country: CA (occurrence: CA)
  Receive Date: 20181023
  Receipt Date: 20181127
  Transmission Date: 20190205
  Serious: Yes (Other)
  Sender: FDA-Public Use
  Company Number: CA-SA-2018SA289885

PATIENT
  Sex: Female

DRUGS (1)
  1. PRALUENT [Suspect]
     Active Substance: ALIROCUMAB
     Dosage: UNK
     Dates: start: 201706

REACTIONS (4)
  - Hepatic enzyme increased [Unknown]
  - Liver disorder [Unknown]
  - Biliary tract disorder [Unknown]
  - Portal vein thrombosis [Unknown]
